FAERS Safety Report 20807679 (Version 1)
Quarter: 2022Q2

REPORT INFORMATION
  Report Type: Spontaneous
  Country: US (occurrence: None)
  Receive Date: 20220509
  Receipt Date: 20220509
  Transmission Date: 20220721
  Serious: Yes (Hospitalization)
  Sender: FDA-Public Use
  Company Number: None

PATIENT
  Age: 77 Year
  Sex: Male

DRUGS (1)
  1. CABOZANTINIB [Suspect]
     Active Substance: CABOZANTINIB
     Indication: Renal cell carcinoma
     Dates: start: 20211116, end: 20220125

REACTIONS (3)
  - Pulmonary embolism [None]
  - Hypophagia [None]
  - Electrocardiogram ST-T segment abnormal [None]

NARRATIVE: CASE EVENT DATE: 20220124
